FAERS Safety Report 18270444 (Version 1)
Quarter: 2020Q3

REPORT INFORMATION
  Report Type: Spontaneous
  Country: GB (occurrence: GB)
  Receive Date: 20200915
  Receipt Date: 20200915
  Transmission Date: 20201103
  Serious: Yes (Hospitalization, Other)
  Sender: FDA-Public Use
  Company Number: GB-PFIZER INC-2020352246

PATIENT
  Age: 54 Year
  Sex: Male

DRUGS (2)
  1. DOCETAXEL. [Suspect]
     Active Substance: DOCETAXEL
     Indication: PROSTATE CANCER
     Dosage: 132 MG
     Route: 042
     Dates: start: 20171024, end: 20171024
  2. DOCETAXEL. [Suspect]
     Active Substance: DOCETAXEL
     Dosage: 132 MG
     Route: 042
     Dates: start: 20180206, end: 20180206

REACTIONS (9)
  - Oesophagitis [Recovered/Resolved]
  - Urinary tract infection [Recovered/Resolved]
  - Oral candidiasis [Recovered/Resolved]
  - Hypersensitivity [Recovered/Resolved]
  - Neutropenic sepsis [Recovered/Resolved]
  - Diarrhoea [Unknown]
  - Dermatitis [Recovered/Resolved]
  - Oropharyngeal pain [Unknown]
  - Mucosal inflammation [Recovered/Resolved]
